FAERS Safety Report 7756721-6 (Version None)
Quarter: 2011Q3

REPORT INFORMATION
  Report Type: 
  Country: None (occurrence: None)
  Receive Date: 20110915
  Receipt Date: 20110915
  Transmission Date: 20111222
  Serious: No
  Sender: FDA-Public Use
  Company Number: None

PATIENT
  Sex: Female
  Weight: 72.5755 kg

DRUGS (1)
  1. LYRICA [Suspect]
     Dosage: 75 BID ORAL; 50 BID ORAL
     Route: 048

REACTIONS (11)
  - OEDEMA PERIPHERAL [None]
  - MEMORY IMPAIRMENT [None]
  - NAIL GROWTH ABNORMAL [None]
  - DRUG DEPENDENCE [None]
  - BLOOD PRESSURE INCREASED [None]
  - ORAL PAIN [None]
  - INCONTINENCE [None]
  - HYPERTONIC BLADDER [None]
  - DYSPHAGIA [None]
  - NO THERAPEUTIC RESPONSE [None]
  - VIITH NERVE PARALYSIS [None]
